FAERS Safety Report 4850529-7 (Version None)
Quarter: 2005Q4

REPORT INFORMATION
  Report Type: 
  Country: None (occurrence: None)
  Receive Date: 20051208
  Receipt Date: 20051130
  Transmission Date: 20060501
  Serious: Yes (Other)
  Sender: FDA-Public Use
  Company Number: 2005120946

PATIENT
  Age: 55 Year
  Sex: Male

DRUGS (7)
  1. CABERGOLINE [Suspect]
     Indication: PARKINSON'S DISEASE
     Dosage: (DAILY INTERVAL:  EVERY DAY), ORAL
     Route: 048
     Dates: start: 20021201, end: 20050727
  2. AMANTADINE HCL [Concomitant]
  3. DILUTOL (TORASEMIDE) [Concomitant]
  4. MOTILIUM [Concomitant]
  5. SINEMET [Concomitant]
  6. STALEVO (CARBIDOPA, ENTACAPONE, LEVODOPA) [Concomitant]
  7. BESITRAN [Concomitant]

REACTIONS (8)
  - AORTIC VALVE INCOMPETENCE [None]
  - BLOOD LACTATE DEHYDROGENASE INCREASED [None]
  - CARDIOMEGALY [None]
  - HAEMOPTYSIS [None]
  - MITRAL VALVE INCOMPETENCE [None]
  - NASOPHARYNGITIS [None]
  - PULMONARY HYPERTENSION [None]
  - TRICUSPID VALVE INCOMPETENCE [None]
